FAERS Safety Report 7597915-2 (Version None)
Quarter: 2011Q3

REPORT INFORMATION
  Report Type: 
  Country: None (occurrence: None)
  Receive Date: 20110708
  Receipt Date: 20110701
  Transmission Date: 20111222
  Serious: Yes (Hospitalization, Other)
  Sender: FDA-Public Use
  Company Number: GB-ABBOTT-11P-167-0836094-00

PATIENT
  Age: 45 Year
  Sex: Male

DRUGS (5)
  1. HUMIRA [Suspect]
     Indication: PSORIASIS
     Dosage: INITIAL DOSE:  80 MG
     Route: 058
     Dates: start: 20080429, end: 20110601
  2. ORAMORPH SR [Concomitant]
     Indication: ARTHRALGIA
     Dates: start: 20070101
  3. MORPHINE SULFATE [Concomitant]
     Indication: ARTHRALGIA
     Dates: start: 20070401
  4. OMACOR [Concomitant]
     Indication: HYPERLIPIDAEMIA
     Dates: start: 20090528
  5. FENOFIBRATE [Concomitant]
     Indication: HYPERLIPIDAEMIA
     Dates: start: 20090101

REACTIONS (3)
  - NAUSEA [None]
  - ABDOMINAL PAIN [None]
  - PYREXIA [None]
